FAERS Safety Report 4809788-9 (Version None)
Quarter: 2005Q4

REPORT INFORMATION
  Report Type: 
  Country: None (occurrence: None)
  Receive Date: 20051024
  Receipt Date: 20051013
  Transmission Date: 20060501
  Serious: Yes (Other)
  Sender: FDA-Public Use
  Company Number: 21414

PATIENT
  Age: 12 Year
  Sex: Male

DRUGS (1)
  1. DICYCLOMINE HCL [Suspect]
     Dosage: IV
     Route: 042
     Dates: start: 20051013

REACTIONS (1)
  - INCORRECT ROUTE OF DRUG ADMINISTRATION [None]
